FAERS Safety Report 9855440 (Version 1)
Quarter: 2013Q4

REPORT INFORMATION
  Report Type: Spontaneous
  Country: US (occurrence: None)
  Receive Date: 20131226
  Receipt Date: 20131226
  Transmission Date: 20140711
  Serious: Yes (Other)
  Sender: FDA-Public Use
  Company Number: PHEH2012US016852

PATIENT
  Sex: 0

DRUGS (2)
  1. SANDOSTATIN LAR DEPOT (OCTREOTIDE WITH POLY(D L-LACTIDE-CO-GLYCOLIDE)) UNKNOWN [Suspect]
     Indication: HYPOPITUITARISM
  2. SANDOSTATIN LAR DEPOT (OCTREOTIDE WITH POLY(D L-LACTIDE-CO-GLYCOLIDE)) UNKNOWN [Suspect]
     Indication: ACROMEGALY

REACTIONS (1)
  - Insulin-like growth factor increased [None]
